FAERS Safety Report 13374375 (Version 1)
Quarter: 2017Q1

REPORT INFORMATION
  Report Type: Spontaneous
  Country: US (occurrence: US)
  Receive Date: 20170327
  Receipt Date: 20170327
  Transmission Date: 20170429
  Serious: No
  Sender: FDA-Public Use
  Company Number: US-FRESENIUS KABI-FK201702499

PATIENT
  Age: 64 Year
  Sex: Female

DRUGS (11)
  1. CYANOCOBALAMIN INJECTION, USP [Suspect]
     Active Substance: CYANOCOBALAMIN
     Route: 030
     Dates: start: 20170220, end: 20170220
  2. CYANOCOBALAMIN INJECTION, USP [Suspect]
     Active Substance: CYANOCOBALAMIN
     Route: 030
     Dates: start: 20170214, end: 20170214
  3. CYANOCOBALAMIN INJECTION, USP [Suspect]
     Active Substance: CYANOCOBALAMIN
     Route: 030
     Dates: start: 20170217, end: 20170217
  4. CYANOCOBALAMIN INJECTION, USP [Suspect]
     Active Substance: CYANOCOBALAMIN
     Route: 030
     Dates: start: 20170320, end: 20170320
  5. CYANOCOBALAMIN INJECTION, USP [Suspect]
     Active Substance: CYANOCOBALAMIN
     Route: 030
     Dates: start: 20170313, end: 20170313
  6. CYANOCOBALAMIN INJECTION, USP [Suspect]
     Active Substance: CYANOCOBALAMIN
     Route: 030
     Dates: start: 20170216, end: 20170216
  7. CYANOCOBALAMIN INJECTION, USP [Suspect]
     Active Substance: CYANOCOBALAMIN
     Route: 030
     Dates: start: 20170227, end: 20170227
  8. CYANOCOBALAMIN INJECTION, USP [Suspect]
     Active Substance: CYANOCOBALAMIN
     Route: 030
     Dates: start: 20170221, end: 20170221
  9. CYANOCOBALAMIN INJECTION, USP [Suspect]
     Active Substance: CYANOCOBALAMIN
     Indication: VITAMIN B12 DEFICIENCY
     Route: 030
     Dates: start: 20170213, end: 20170213
  10. CYANOCOBALAMIN INJECTION, USP [Suspect]
     Active Substance: CYANOCOBALAMIN
     Route: 030
     Dates: start: 20170222, end: 20170222
  11. CYANOCOBALAMIN INJECTION, USP [Suspect]
     Active Substance: CYANOCOBALAMIN
     Route: 030
     Dates: start: 20170306, end: 20170306

REACTIONS (1)
  - Fatigue [Not Recovered/Not Resolved]

NARRATIVE: CASE EVENT DATE: 201702
